FAERS Safety Report 14871528 (Version 5)
Quarter: 2018Q2

REPORT INFORMATION
  Report Type: Report from Study
  Country: DE (occurrence: DE)
  Receive Date: 20180509
  Receipt Date: 20180629
  Transmission Date: 20180711
  Serious: Yes (Hospitalization, Other)
  Sender: FDA-Public Use
  Company Number: DE-BAXTER-2018BAX013409

PATIENT
  Age: 66 Year
  Sex: Male
  Weight: 85 kg

DRUGS (87)
  1. ENDOXAN 1G [Suspect]
     Active Substance: CYCLOPHOSPHAMIDE
     Dosage: 1480 MG,(INFUSION RATE 4.2 ML/MIN FROM 08:00 TO 10:00)
     Route: 041
     Dates: start: 20180523, end: 20180523
  2. VINCRISTINE [Suspect]
     Active Substance: VINCRISTINE
     Dosage: 2 MG, (INFUSION RATE 2ML/MIN FROM 07:55 TO 08:00)
     Route: 041
     Dates: start: 20180523, end: 20180523
  3. TAVEGIL [Concomitant]
     Active Substance: CLEMASTINE FUMARATE
     Indication: PRODUCT USED FOR UNKNOWN INDICATION
     Dosage: UNK, DOSAGE FORM: UNSPECIFIED
     Route: 042
     Dates: start: 20180403, end: 20180403
  4. MESNA. [Concomitant]
     Active Substance: MESNA
     Indication: PRODUCT USED FOR UNKNOWN INDICATION
     Dosage: 1200 MG, UNK, DOSAGE FORM: UNSPECIFIED
     Route: 042
     Dates: start: 20180404, end: 20180404
  5. MESNA. [Concomitant]
     Active Substance: MESNA
     Dosage: 1200 MG, UNK
     Route: 042
     Dates: start: 20180523, end: 20180523
  6. ALLOPURINOL. [Concomitant]
     Active Substance: ALLOPURINOL
     Indication: PROPHYLAXIS
     Dosage: 300 MG, UNK,
     Route: 048
     Dates: start: 20180213, end: 20180311
  7. AMPHO MORONAL [Concomitant]
     Active Substance: AMPHOTERICIN B
     Dosage: UNK, UNK, BID (2X1) (2)
     Route: 048
     Dates: start: 20180502, end: 20180509
  8. RANITIDIN [Concomitant]
     Active Substance: RANITIDINE HYDROCHLORIDE
     Indication: PROPHYLAXIS
     Dosage: UNK, DOSAGE FORM: UNSPECIFIED
     Route: 042
     Dates: start: 20180219, end: 20180219
  9. PREDNISOLUT [Concomitant]
     Active Substance: PREDNISOLONE
     Dosage: 100 MG, UNK
     Route: 042
     Dates: start: 20180312, end: 20180312
  10. SALBUTAMOL [Concomitant]
     Active Substance: ALBUTEROL
     Indication: ASTHMA
     Route: 048
  11. DOXORUBICIN [Suspect]
     Active Substance: DOXORUBICIN
     Indication: PRODUCT USED FOR UNKNOWN INDICATION
     Dosage: 99 MG, UNK
     Route: 041
     Dates: start: 20180313, end: 20180313
  12. DOXORUBICIN [Suspect]
     Active Substance: DOXORUBICIN
     Dosage: 99 MG, UNK
     Route: 041
     Dates: start: 20180404, end: 20180404
  13. KEVATRIL [Concomitant]
     Active Substance: GRANISETRON HYDROCHLORIDE
     Dosage: 1 MG, UNK
     Route: 042
     Dates: start: 20180405, end: 20180405
  14. KEVATRIL [Concomitant]
     Active Substance: GRANISETRON HYDROCHLORIDE
     Dosage: 1 MG, UNK
     Route: 042
     Dates: start: 20180524, end: 20180524
  15. PARACETAMOL [Concomitant]
     Active Substance: ACETAMINOPHEN
     Indication: PROPHYLAXIS
     Dosage: 1 G, UNK
     Route: 048
     Dates: start: 20180403, end: 20180403
  16. PARACETAMOL [Concomitant]
     Active Substance: ACETAMINOPHEN
     Dosage: 1 G, UNK
     Route: 048
     Dates: start: 20180522, end: 20180522
  17. TAVEGIL [Concomitant]
     Active Substance: CLEMASTINE FUMARATE
     Dosage: UNK ()
     Route: 042
     Dates: start: 20180522, end: 20180522
  18. MESNA. [Concomitant]
     Active Substance: MESNA
     Dosage: 1200 MG, UNK
     Route: 042
     Dates: start: 20180503, end: 20180503
  19. AMPHO MORONAL [Concomitant]
     Active Substance: AMPHOTERICIN B
     Dosage: 2 UNK, DOSAGE FORM: UNSPECIFIED
     Route: 048
     Dates: start: 20180213, end: 20180409
  20. ENDOXAN 1G [Suspect]
     Active Substance: CYCLOPHOSPHAMIDE
     Dosage: 1480 MG,(INFUSION RATE 4.17 ML/MIN FROM 07:35 TO 09:35)
     Route: 041
     Dates: start: 20180503, end: 20180503
  21. DOXORUBICIN [Suspect]
     Active Substance: DOXORUBICIN
     Dosage: 99 MG, (INFUSION RATE 8.4ML/MIN FROM 10:00 TO 10:30)
     Route: 041
     Dates: start: 20180523, end: 20180523
  22. PREDNISONE. [Suspect]
     Active Substance: PREDNISONE
     Dosage: 400 MG, UNK
     Route: 048
     Dates: start: 20180503, end: 20180506
  23. KEVATRIL [Concomitant]
     Active Substance: GRANISETRON HYDROCHLORIDE
     Indication: PROPHYLAXIS
     Dosage: 3 MG, UNK
     Route: 042
     Dates: start: 20180313, end: 20180313
  24. KEVATRIL [Concomitant]
     Active Substance: GRANISETRON HYDROCHLORIDE
     Dosage: 3 MG, UNK
     Route: 042
     Dates: start: 20180221, end: 20180221
  25. PARACETAMOL [Concomitant]
     Active Substance: ACETAMINOPHEN
     Dosage: 1 G, UNK, DOSAGE FORM: UNSPECIFIED
     Route: 048
     Dates: start: 20180219, end: 20180219
  26. TAVEGIL [Concomitant]
     Active Substance: CLEMASTINE FUMARATE
     Dosage: UNK ()
     Route: 042
     Dates: start: 20180502, end: 20180502
  27. PANTOZOL [Concomitant]
     Active Substance: PANTOPRAZOLE SODIUM
     Indication: PROPHYLAXIS
     Dosage: 40 MG, UNK, DOSAGE FORM: UNSPECIFIED
     Route: 048
     Dates: start: 20180219
  28. VINCRISTINE [Suspect]
     Active Substance: VINCRISTINE
     Dosage: 2 MG, UNK, DOSAGE FORM: UNSPECIFIED
     Route: 041
     Dates: start: 20180404, end: 20180404
  29. PREDNISONE. [Suspect]
     Active Substance: PREDNISONE
     Dosage: 400 MG, UNK
     Route: 048
     Dates: start: 20180523, end: 20180526
  30. RIXIMYO [Suspect]
     Active Substance: RITUXIMAB
     Indication: PRODUCT USED FOR UNKNOWN INDICATION
     Dosage: 740 MG, UNK
     Route: 041
     Dates: start: 20180403, end: 20180403
  31. KEVATRIL [Concomitant]
     Active Substance: GRANISETRON HYDROCHLORIDE
     Dosage: DOSAGE FORM: UNSPECIFIED
     Route: 048
     Dates: start: 20180221, end: 20180404
  32. KEVATRIL [Concomitant]
     Active Substance: GRANISETRON HYDROCHLORIDE
     Dosage: 1 MG, UNK
     Route: 042
     Dates: start: 20180504, end: 20180504
  33. KEVATRIL [Concomitant]
     Active Substance: GRANISETRON HYDROCHLORIDE
     Dosage: 3MG, UNK
     Route: 042
     Dates: start: 20180503, end: 20180503
  34. PARACETAMOL [Concomitant]
     Active Substance: ACETAMINOPHEN
     Dosage: 1 G, UNK
     Route: 048
     Dates: start: 20180502, end: 20180502
  35. MESNA. [Concomitant]
     Active Substance: MESNA
     Dosage: 1200 MG, UNK, DOSAGE FORM: UNSPECIFIED
     Route: 042
     Dates: start: 20180313, end: 20180313
  36. ALLOPURINOL. [Concomitant]
     Active Substance: ALLOPURINOL
     Dosage: DOSAGE FORM: UNSPECIFIED
     Route: 048
     Dates: start: 20180313
  37. AMPHO MORONAL [Concomitant]
     Active Substance: AMPHOTERICIN B
     Indication: PRODUCT USED FOR UNKNOWN INDICATION
     Dosage: DOSE : 2 (UNITS NOT REPORTED), UNK UNK, BID (2X1)
     Route: 048
     Dates: start: 20180403, end: 20180409
  38. RANITIDIN [Concomitant]
     Active Substance: RANITIDINE HYDROCHLORIDE
     Dosage: UNK ()
     Route: 042
     Dates: start: 20180522, end: 20180522
  39. PREDNISOLUT [Concomitant]
     Active Substance: PREDNISOLONE
     Dosage: DOSAGE FORM: UNSPECIFIED
     Route: 048
     Dates: start: 20180213, end: 20180218
  40. NEULASTA [Concomitant]
     Active Substance: PEGFILGRASTIM
     Dosage: 6 MG, UNK
     Route: 058
     Dates: start: 20180505, end: 20180505
  41. SILAPO [Concomitant]
     Indication: PRODUCT USED FOR UNKNOWN INDICATION
     Dosage: 20.000 IE, QW (1)
     Route: 058
     Dates: start: 20180503
  42. ENDOXAN 1G [Suspect]
     Active Substance: CYCLOPHOSPHAMIDE
     Indication: DIFFUSE LARGE B-CELL LYMPHOMA
     Dosage: 1480 MG, UNK, DOSAGE FORM : UNSPECIFIED
     Route: 041
     Dates: start: 20180221, end: 20180221
  43. VINCRISTINE [Suspect]
     Active Substance: VINCRISTINE
     Indication: PRODUCT USED FOR UNKNOWN INDICATION
     Dosage: 2 MG, UNK, DOSAGE FORM: UNSPECIFIED
     Route: 041
     Dates: start: 20180313, end: 20180313
  44. PREDNISONE. [Suspect]
     Active Substance: PREDNISONE
     Indication: DIFFUSE LARGE B-CELL LYMPHOMA
     Dosage: 500 MG, UNK, DOSAGE FORM: UNSPECIFIED
     Route: 048
     Dates: start: 20180221, end: 20180225
  45. PREDNISONE. [Suspect]
     Active Substance: PREDNISONE
     Dosage: 400 MG, UNK, DOSAGE FORM: UNSPECIFIED, DOSAGE FORM: UNSPECIFIED
     Route: 048
     Dates: start: 20180404, end: 20180407
  46. KEVATRIL [Concomitant]
     Active Substance: GRANISETRON HYDROCHLORIDE
     Dosage: 3 MG, UNK
     Route: 042
     Dates: start: 20180523, end: 20180523
  47. TAVEGIL [Concomitant]
     Active Substance: CLEMASTINE FUMARATE
     Indication: PROPHYLAXIS
     Dosage: UNK, DOSAGE FORM UNSPECIFIED
     Route: 042
     Dates: start: 20180219, end: 20180219
  48. AMPHO MORONAL [Concomitant]
     Active Substance: AMPHOTERICIN B
     Indication: PROPHYLAXIS
     Dosage: UNK UNK, BID (2X1); DOSE: 2 (UNITS NOT REPORTED)
     Route: 048
     Dates: start: 20180219, end: 20180226
  49. AMPHO MORONAL [Concomitant]
     Active Substance: AMPHOTERICIN B
     Dosage: UNK, UNK, BID (2X1) (2)
     Route: 048
     Dates: start: 20180522, end: 20180528
  50. RANITIDIN [Concomitant]
     Active Substance: RANITIDINE HYDROCHLORIDE
     Dosage: UNK, DOSAGE FORM: UNSPECIFIED
     Route: 042
     Dates: start: 20180403, end: 20180403
  51. PREDNISOLUT [Concomitant]
     Active Substance: PREDNISOLONE
     Dosage: 100 MG, UNK
     Route: 042
     Dates: start: 20180403, end: 20180403
  52. PREDNISOLUT [Concomitant]
     Active Substance: PREDNISOLONE
     Dosage: 100 MG, UNK
     Route: 042
     Dates: start: 20180502, end: 20180502
  53. NEULASTA [Concomitant]
     Active Substance: PEGFILGRASTIM
     Indication: PRODUCT USED FOR UNKNOWN INDICATION
     Dosage: 6 MG, UNK
     Route: 058
     Dates: start: 20180514, end: 20180514
  54. VINCRISTINE [Suspect]
     Active Substance: VINCRISTINE
     Indication: DIFFUSE LARGE B-CELL LYMPHOMA
     Dosage: 2 MG, (INFUSION RATE 2 ML/MIN FROM 07:30 TO 07:35) DOSAGE FORM: UNSPECIFIED
     Route: 041
     Dates: start: 20180221, end: 20180221
  55. VINCRISTINE [Suspect]
     Active Substance: VINCRISTINE
     Dosage: 2 MG, (INFUSION RATE 2ML/MIN FROM 07:30 TO 07:35)
     Route: 041
     Dates: start: 20180503, end: 20180503
  56. PREDNISONE. [Suspect]
     Active Substance: PREDNISONE
     Indication: PRODUCT USED FOR UNKNOWN INDICATION
     Dosage: 500 MG, UNK, DOSAGE FORM: UNSPECIFIED
     Route: 048
     Dates: start: 20180313, end: 20180317
  57. RIXIMYO [Suspect]
     Active Substance: RITUXIMAB
     Dosage: 740MG, (INFUSION RATE 4.17 ML/MIN FROM 07:30 TO 09:30)
     Route: 041
     Dates: start: 20180502, end: 20180502
  58. RIXIMYO [Suspect]
     Active Substance: RITUXIMAB
     Dosage: 740MG, (INFUSION RATE 4.2ML/MIN FROM 08:00 TO 10:00)
     Route: 041
     Dates: start: 20180522
  59. KEVATRIL [Concomitant]
     Active Substance: GRANISETRON HYDROCHLORIDE
     Dosage: DOSAGE FORM: UNSPECIFIED
     Route: 048
     Dates: start: 20180213, end: 20180213
  60. KEVATRIL [Concomitant]
     Active Substance: GRANISETRON HYDROCHLORIDE
     Dosage: DOSAGE FORM: UNSPECIFIED
     Route: 048
     Dates: start: 20180222, end: 20180405
  61. PARACETAMOL [Concomitant]
     Active Substance: ACETAMINOPHEN
     Indication: PRODUCT USED FOR UNKNOWN INDICATION
     Dosage: 1 G, UNK
     Route: 048
     Dates: start: 20180312, end: 20180312
  62. PARACETAMOL [Concomitant]
     Active Substance: ACETAMINOPHEN
     Dosage: 1 G, UNK
     Route: 048
     Dates: start: 20180220, end: 20180220
  63. TAVEGIL [Concomitant]
     Active Substance: CLEMASTINE FUMARATE
     Dosage: UNK, DOSAGE FORM: UNSPECIFIED
     Route: 042
     Dates: start: 20180220, end: 20180220
  64. MESNA. [Concomitant]
     Active Substance: MESNA
     Indication: PROPHYLAXIS
     Dosage: 1200 MG, UNK, DOSAGE FORM: UNSPECIFIED
     Route: 042
     Dates: start: 20180221, end: 20180221
  65. AMPHO MORONAL [Concomitant]
     Active Substance: AMPHOTERICIN B
     Dosage: UNK UNK, BID (2X1); DOSE: 2 (UNITS NOT REPORTED)
     Route: 048
     Dates: start: 20180312, end: 20180318
  66. ACIC [Concomitant]
     Active Substance: ACYCLOVIR
     Indication: PROPHYLAXIS
     Dosage: 800 MG, UNK, DOSAGE FORM: UNSPECIFIED
     Route: 048
     Dates: start: 20180219
  67. PREDNISOLUT [Concomitant]
     Active Substance: PREDNISOLONE
     Indication: PROPHYLAXIS
     Dosage: 100 MG, UNK
     Route: 042
     Dates: start: 20180219, end: 20180219
  68. PREDNISOLUT [Concomitant]
     Active Substance: PREDNISOLONE
     Route: 048
     Dates: start: 20180213, end: 20180213
  69. COTRIM [Concomitant]
     Active Substance: SULFAMETHOXAZOLE\TRIMETHOPRIM
     Indication: PROPHYLAXIS
     Dosage: UNK (3 DAYS WEEKLY), DOSAGE FORM: UNSPECIFIED
     Route: 048
     Dates: start: 20180219
  70. ENDOXAN 1G [Suspect]
     Active Substance: CYCLOPHOSPHAMIDE
     Indication: PRODUCT USED FOR UNKNOWN INDICATION
     Dosage: 1480 MG, UNK, DOSAGE FORM : UNSPECIFIED
     Route: 041
     Dates: start: 20180404, end: 20180404
  71. ENDOXAN 1G [Suspect]
     Active Substance: CYCLOPHOSPHAMIDE
     Dosage: 1480 MG, UNK, DOSAGE FORM : UNSPECIFIED
     Route: 041
     Dates: start: 20180313, end: 20180313
  72. DOXORUBICIN [Suspect]
     Active Substance: DOXORUBICIN
     Indication: DIFFUSE LARGE B-CELL LYMPHOMA
     Dosage: 99 MG, UNK
     Route: 041
     Dates: start: 20180221, end: 20180221
  73. KEVATRIL [Concomitant]
     Active Substance: GRANISETRON HYDROCHLORIDE
     Indication: PRODUCT USED FOR UNKNOWN INDICATION
     Dosage: 3 MG, UNK
     Route: 042
     Dates: start: 20180404, end: 20180404
  74. RANITIDIN [Concomitant]
     Active Substance: RANITIDINE HYDROCHLORIDE
     Indication: PRODUCT USED FOR UNKNOWN INDICATION
     Dosage: UNK, DOSAGE FORM: UNSPECIFIED
     Route: 042
     Dates: start: 20180312, end: 20180312
  75. RANITIDIN [Concomitant]
     Active Substance: RANITIDINE HYDROCHLORIDE
     Dosage: UNK, DOSAGE FORM: UNSPECIFIED
     Route: 042
     Dates: start: 20180220, end: 20180220
  76. PREDNISOLUT [Concomitant]
     Active Substance: PREDNISOLONE
     Dosage: 100 MG, UNK
     Route: 042
     Dates: start: 20180522, end: 20180522
  77. NEULASTA [Concomitant]
     Active Substance: PEGFILGRASTIM
     Dosage: 6 MG, UNK
     Route: 058
     Dates: start: 20180525, end: 20180525
  78. DOXORUBICIN [Suspect]
     Active Substance: DOXORUBICIN
     Dosage: 99 MG, (INFUSION RATE 8.3 ML/MIN FROM 09:35 TO 10:05)
     Route: 041
     Dates: start: 20180503, end: 20180503
  79. RIXIMYO [Suspect]
     Active Substance: RITUXIMAB
     Indication: DIFFUSE LARGE B-CELL LYMPHOMA
     Dosage: 740 MG, UNK
     Route: 041
     Dates: start: 20180219, end: 20180219
  80. RIXIMYO [Suspect]
     Active Substance: RITUXIMAB
     Dosage: 600 MG, UNK
     Route: 041
     Dates: start: 20180312, end: 20180312
  81. KEVATRIL [Concomitant]
     Active Substance: GRANISETRON HYDROCHLORIDE
     Dosage: 1 MG, UNK
     Route: 042
     Dates: start: 20180314, end: 20180314
  82. KEVATRIL [Concomitant]
     Active Substance: GRANISETRON HYDROCHLORIDE
     Dosage: 1 MG, UNK, DOSAGE FORM: UNSPECIFIED
     Route: 042
     Dates: start: 20180222, end: 20180222
  83. TAVEGIL [Concomitant]
     Active Substance: CLEMASTINE FUMARATE
     Dosage: UNK, DOSAGE FORM: UNSPECIFIED
     Route: 042
     Dates: start: 20180312, end: 20180312
  84. RANITIDIN [Concomitant]
     Active Substance: RANITIDINE HYDROCHLORIDE
     Dosage: DOSAGE FORM: UNSPECIFIED
     Route: 042
     Dates: start: 20180219, end: 20180413
  85. RANITIDIN [Concomitant]
     Active Substance: RANITIDINE HYDROCHLORIDE
     Dosage: UNK ()
     Route: 042
     Dates: start: 20180502, end: 20180502
  86. BISOPROLOL [Concomitant]
     Active Substance: BISOPROLOL
     Indication: HYPERTENSION
     Dosage: 2.5 MG, UNK, DOSAGE FORM: UNSPECIFIED
     Route: 048
     Dates: start: 20170830
  87. PREDNISOLUT [Concomitant]
     Active Substance: PREDNISOLONE
     Indication: PRODUCT USED FOR UNKNOWN INDICATION
     Dosage: 100 MG, UNK
     Route: 042
     Dates: start: 20180220, end: 20180220

REACTIONS (14)
  - Pain [Recovered/Resolved]
  - Deep vein thrombosis [Recovered/Resolved]
  - Dizziness [Recovered/Resolved]
  - Nausea [Recovered/Resolved]
  - Vitamin D deficiency [Not Recovered/Not Resolved]
  - Pulpitis dental [Recovered/Resolved]
  - C-reactive protein increased [Recovered/Resolved]
  - C-reactive protein increased [Recovered/Resolved]
  - Lymphoedema [Recovered/Resolved]
  - Asthma [Recovered/Resolved]
  - Leukopenia [Recovered/Resolved]
  - Polyneuropathy [Not Recovered/Not Resolved]
  - Drug therapeutic incompatibility [Recovered/Resolved]
  - Anaemia [Not Recovered/Not Resolved]

NARRATIVE: CASE EVENT DATE: 20180224
